FAERS Safety Report 9717401 (Version 1)
Quarter: 2013Q4

REPORT INFORMATION
  Report Type: Spontaneous
  Country: US (occurrence: US)
  Receive Date: 20131127
  Receipt Date: 20131127
  Transmission Date: 20140711
  Serious: No
  Sender: FDA-Public Use
  Company Number: US-GILEAD-2008-0019638

PATIENT
  Age: 72 Year
  Sex: Male

DRUGS (9)
  1. LETAIRIS [Suspect]
     Indication: PULMONARY ARTERIAL HYPERTENSION
     Route: 048
     Dates: start: 20080402
  2. LISINOPRIL [Concomitant]
     Route: 048
  3. ASA [Concomitant]
     Route: 048
  4. LANTUS [Concomitant]
  5. METFORMIN [Concomitant]
     Route: 048
  6. ACTOS [Concomitant]
     Route: 048
  7. NEXIUM [Concomitant]
     Route: 048
  8. CENTRUM [Concomitant]
     Route: 048
  9. ALLI [Concomitant]
     Route: 048

REACTIONS (1)
  - Weight increased [Unknown]
